FAERS Safety Report 24651843 (Version 5)
Quarter: 2025Q4

REPORT INFORMATION
  Report Type: Spontaneous
  Country: US (occurrence: US)
  Receive Date: 20241122
  Receipt Date: 20251106
  Transmission Date: 20260117
  Serious: Yes (Hospitalization, Other)
  Sender: CSL BEHRING
  Company Number: US-BEH-2024185697

PATIENT
  Age: 6 Year
  Sex: Female

DRUGS (4)
  1. CORIFACT [Suspect]
     Active Substance: FACTOR XIII CONCENTRATE (HUMAN)
     Indication: Coagulation factor deficiency
     Dosage: 1300 IU, QMT
     Route: 042
     Dates: start: 201808
  2. CORIFACT [Suspect]
     Active Substance: FACTOR XIII CONCENTRATE (HUMAN)
     Indication: Haemorrhage
     Dosage: 1300 IU, EVERY 28 DAYS / PRN
     Route: 042
     Dates: start: 20221206
  3. CORIFACT [Suspect]
     Active Substance: FACTOR XIII CONCENTRATE (HUMAN)
     Dosage: 1300 IU, PRN
     Route: 042
     Dates: start: 202212
  4. CORIFACT [Suspect]
     Active Substance: FACTOR XIII CONCENTRATE (HUMAN)
     Dosage: 1300 IU, QMT
     Route: 042
     Dates: start: 202212

REACTIONS (7)
  - Drug level below therapeutic [Unknown]
  - Epistaxis [Unknown]
  - Epistaxis [Recovered/Resolved]
  - Ear injury [Unknown]
  - Fall [Unknown]
  - Head injury [Unknown]
  - Vomiting [Unknown]

NARRATIVE: CASE EVENT DATE: 20241108
